FAERS Safety Report 5049521-1 (Version None)
Quarter: 2006Q3

REPORT INFORMATION
  Report Type: 
  Country: None (occurrence: None)
  Receive Date: 20060711
  Receipt Date: 20060711
  Transmission Date: 20061208
  Serious: Yes (Other)
  Sender: FDA-Public Use
  Company Number: None

PATIENT
  Sex: Female

DRUGS (1)
  1. RHOGAM UF [Suspect]
     Indication: PROPHYLAXIS
     Dosage: 300 MG
     Dates: start: 20060320

REACTIONS (3)
  - COAGULATION FACTOR VIII LEVEL INCREASED [None]
  - DRUG EXPOSURE DURING PREGNANCY [None]
  - RHESUS ANTIBODIES [None]
